FAERS Safety Report 7782562-X (Version None)
Quarter: 2011Q3

REPORT INFORMATION
  Report Type: 
  Country: None (occurrence: None)
  Receive Date: 20110923
  Receipt Date: 20110909
  Transmission Date: 20111222
  Serious: Yes (Other)
  Sender: FDA-Public Use
  Company Number: 2011SP042868

PATIENT
  Sex: Female

DRUGS (1)
  1. INTERFERON [Suspect]
     Indication: HEPATITIS
     Dosage: TIW

REACTIONS (3)
  - ARTHRITIS [None]
  - HEPATIC CIRRHOSIS [None]
  - INTERVERTEBRAL DISC DEGENERATION [None]
